FAERS Safety Report 13664332 (Version 4)
Quarter: 2017Q4

REPORT INFORMATION
  Report Type: Spontaneous
  Country: JP (occurrence: JP)
  Receive Date: 20170619
  Receipt Date: 20171017
  Transmission Date: 20180320
  Serious: Yes (Hospitalization, Other)
  Sender: FDA-Public Use
  Company Number: JP-JNJFOC-20170614652

PATIENT
  Age: 76 Year
  Sex: Male
  Weight: 72 kg

DRUGS (4)
  1. PIPERACILLIN AND TAZOBACTAM [Suspect]
     Active Substance: PIPERACILLIN SODIUM\TAZOBACTAM SODIUM
     Indication: CELLULITIS
     Route: 041
     Dates: start: 20170609, end: 20170619
  2. CEFAZOLIN SODIUM. [Suspect]
     Active Substance: CEFAZOLIN SODIUM
     Indication: POSTOPERATIVE WOUND INFECTION
     Route: 041
     Dates: start: 20170605, end: 20170608
  3. STELARA [Suspect]
     Active Substance: USTEKINUMAB
     Indication: PSORIASIS
     Route: 058
     Dates: start: 20161226
  4. AMPICILLIN SODIUM. [Suspect]
     Active Substance: AMPICILLIN SODIUM
     Indication: POSTOPERATIVE WOUND INFECTION
     Route: 041
     Dates: start: 20170609, end: 20170609

REACTIONS (5)
  - Pustular psoriasis [Recovering/Resolving]
  - Cellulitis [Recovering/Resolving]
  - Erythrodermic psoriasis [Recovering/Resolving]
  - Urinary tract infection [Recovering/Resolving]
  - Postoperative wound infection [Recovering/Resolving]

NARRATIVE: CASE EVENT DATE: 20170112
